FAERS Safety Report 9746338 (Version 1)
Quarter: 2013Q4

REPORT INFORMATION
  Report Type: Spontaneous
  Country: US (occurrence: US)
  Receive Date: 20131211
  Receipt Date: 20131211
  Transmission Date: 20140711
  Serious: Yes (Other)
  Sender: FDA-Public Use
  Company Number: US-BAYER-2013-148654

PATIENT
  Sex: Female

DRUGS (1)
  1. ALKA-SELTZER FRUIT CHEWS [Suspect]
     Dosage: 1 DF, ONCE
     Route: 048
     Dates: start: 20131202, end: 20131202

REACTIONS (5)
  - Hallucination [Not Recovered/Not Resolved]
  - Vomiting [Not Recovered/Not Resolved]
  - Asthenia [Not Recovered/Not Resolved]
  - Pallor [Not Recovered/Not Resolved]
  - Malaise [None]
